FAERS Safety Report 5706415-3 (Version None)
Quarter: 2008Q2

REPORT INFORMATION
  Report Type: 
  Country: None (occurrence: None)
  Receive Date: 20080415
  Receipt Date: 20080407
  Transmission Date: 20081010
  Serious: Yes (Other)
  Sender: FDA-Public Use
  Company Number: SE-ALLERGAN-0804124US

PATIENT
  Age: 34 Year
  Sex: Male

DRUGS (2)
  1. BOTOX [Suspect]
     Indication: URINARY TRACT DISORDER
     Dosage: 300 UNITS, SINGLE
     Dates: start: 20051101, end: 20051101
  2. ANTICHOLINERGIC AGENTS [Concomitant]
     Indication: DRUG USE FOR UNKNOWN INDICATION

REACTIONS (1)
  - MUSCULAR WEAKNESS [None]
